FAERS Safety Report 6231522-9 (Version None)
Quarter: 2009Q2

REPORT INFORMATION
  Report Type: 
  Country: None (occurrence: None)
  Receive Date: 20090616
  Receipt Date: 20090610
  Transmission Date: 20091009
  Serious: Yes (Death)
  Sender: FDA-Public Use
  Company Number: B0578706A

PATIENT
  Age: 19 Year
  Sex: Female

DRUGS (1)
  1. LAMICTIN [Suspect]
     Route: 048

REACTIONS (1)
  - SUDDEN DEATH [None]
